FAERS Safety Report 23317984 (Version 1)
Quarter: 2023Q4

REPORT INFORMATION
  Report Type: Spontaneous
  Country: FR (occurrence: FR)
  Receive Date: 20231219
  Receipt Date: 20231219
  Transmission Date: 20240109
  Serious: Yes (Hospitalization, Other)
  Sender: FDA-Public Use
  Company Number: None

PATIENT
  Age: 46 Year
  Sex: Female
  Weight: 51.5 kg

DRUGS (2)
  1. MESNA [Suspect]
     Active Substance: MESNA
     Indication: Chemotherapy urothelial toxicity attenuation
     Dosage: 600 MG/14 DAYS (IN 3 DOSES)
     Route: 048
     Dates: start: 20231106, end: 20231120
  2. CYCLOPHOSPHAMIDE [Suspect]
     Active Substance: CYCLOPHOSPHAMIDE
     Indication: Lupus nephritis
     Dosage: 500 MG, EVERY 14 DAYS
     Route: 042
     Dates: start: 20231106, end: 20231120

REACTIONS (1)
  - Dermatitis bullous [Recovering/Resolving]

NARRATIVE: CASE EVENT DATE: 20231118
